FAERS Safety Report 8582544 (Version 6)
Quarter: 2014Q1

REPORT INFORMATION
  Report Type: Spontaneous
  Country: US (occurrence: US)
  Receive Date: 20120529
  Receipt Date: 20140225
  Transmission Date: 20141002
  Serious: No
  Sender: FDA-Public Use
  Company Number: US-PFIZER INC-2012127100

PATIENT
  Age: 82 Year
  Sex: Male
  Weight: 79.37 kg

DRUGS (11)
  1. SUTENT [Suspect]
     Indication: METASTATIC RENAL CELL CARCINOMA
     Dosage: 50 MG, CYCLIC( DAILY 4 WKS ON, 2 WKS OFF)
     Route: 048
     Dates: start: 20120517
  2. SUTENT [Suspect]
     Indication: RENAL CANCER
     Dosage: 50 MG, CYCLIC (DAILY-ON 2 WKS AND OFF 1 WEEK)
  3. SUTENT [Suspect]
     Dosage: 50 MG, UNK
     Dates: start: 20140204
  4. LANTUS [Concomitant]
     Indication: TYPE 2 DIABETES MELLITUS
     Dosage: 20 IU, DAILY
  5. LYRICA [Concomitant]
     Indication: NEUROPATHY PERIPHERAL
     Dosage: 600 MG, 1X/DAY EVERY EVENING
  6. LYRICA [Concomitant]
     Indication: DIABETIC NEUROPATHY
  7. GLIPIZIDE [Concomitant]
     Dosage: UNK
  8. AMLODIPINE [Concomitant]
     Dosage: 2.5 MG, 1X/DAY (QAM)
     Dates: start: 201205
  9. METOPROLOL TARTRATE [Concomitant]
     Dosage: UNK
  10. LISINOPRIL [Concomitant]
     Dosage: UNK
  11. GEMFIBROZIL [Concomitant]
     Dosage: UNK

REACTIONS (7)
  - Palmar-plantar erythrodysaesthesia syndrome [Recovering/Resolving]
  - Glossodynia [Not Recovered/Not Resolved]
  - Joint stiffness [Unknown]
  - Diarrhoea [Unknown]
  - Constipation [Unknown]
  - Stomatitis [Unknown]
  - Fatigue [Unknown]
